FAERS Safety Report 7086824-3 (Version None)
Quarter: 2010Q4

REPORT INFORMATION
  Report Type: 
  Country: None (occurrence: None)
  Receive Date: 20101105
  Receipt Date: 20101022
  Transmission Date: 20110411
  Serious: Yes (Death)
  Sender: FDA-Public Use
  Company Number: US-AMGEN-USASP2010001268

PATIENT

DRUGS (4)
  1. NPLATE [Suspect]
     Indication: IDIOPATHIC THROMBOCYTOPENIC PURPURA
     Dosage: 4 A?G/KG, UNK
     Dates: start: 20080915, end: 20100601
  2. NPLATE [Suspect]
     Dates: start: 20080930
  3. IMMU-G [Concomitant]
     Dosage: UNK
     Route: 042
  4. RITUXIMAB [Concomitant]
     Dosage: UNK

REACTIONS (1)
  - RESPIRATORY DISTRESS [None]
